FAERS Safety Report 8314026-9 (Version None)
Quarter: 2012Q2

REPORT INFORMATION
  Report Type: 
  Country: None (occurrence: None)
  Receive Date: 20120426
  Receipt Date: 20120412
  Transmission Date: 20120825
  Serious: Yes (Hospitalization, Other)
  Sender: FDA-Public Use
  Company Number: US-FRI-1000028684

PATIENT
  Sex: Female

DRUGS (8)
  1. SUDAFED 12 HOUR [Suspect]
     Indication: HYPERSENSITIVITY
  2. ENBREL [Concomitant]
     Indication: RHEUMATOID ARTHRITIS
  3. THYROID TAB [Suspect]
     Dosage: 120 MG
     Dates: start: 20110101, end: 20111101
  4. METHOTREXATE [Concomitant]
     Indication: RHEUMATOID ARTHRITIS
  5. THYROID TAB [Suspect]
     Dosage: 120 MG
     Dates: start: 20111101
  6. THYROID TAB [Suspect]
     Indication: THYROID THERAPY
     Dosage: 180 MG
     Dates: start: 19720101, end: 20110101
  7. PRADAXA [Suspect]
     Indication: ATRIAL FIBRILLATION
     Dates: start: 20111101
  8. VITAMINS NOS [Concomitant]

REACTIONS (5)
  - RECTAL HAEMORRHAGE [None]
  - HAEMOGLOBIN DECREASED [None]
  - EPISTAXIS [None]
  - HEART RATE INCREASED [None]
  - ATRIAL FIBRILLATION [None]
